FAERS Safety Report 20564494 (Version 1)
Quarter: 2022Q1

REPORT INFORMATION
  Report Type: Spontaneous
  Country: CA (occurrence: CA)
  Receive Date: 20220308
  Receipt Date: 20220308
  Transmission Date: 20220423
  Serious: Yes (Death)
  Sender: FDA-Public Use
  Company Number: CA-BAXTER-2022BAX004741

PATIENT
  Age: 70 Year
  Sex: Male

DRUGS (4)
  1. TRAVASOL [Suspect]
     Active Substance: ALANINE\ARGININE\GLYCINE\HISTIDINE\ISOLEUCINE\LEUCINE\LYSINE HYDROCHLORIDE\METHIONINE\PHENYLALANINE\
     Indication: Parenteral nutrition
     Dosage: INFUSION RATE: 40 MILLILITERS/HOUR (ML/H), ON 21JAN2022: INFUSION RATE WAS INCREASED TO 83 MILLILITE
     Route: 042
     Dates: start: 20220120, end: 20220127
  2. DEXTROSE [Suspect]
     Active Substance: DEXTROSE
     Indication: Blood chloride increased
     Route: 042
     Dates: start: 20220127
  3. SODIUM ACETATE [Suspect]
     Active Substance: SODIUM ACETATE
     Indication: Parenteral nutrition
     Route: 065
     Dates: start: 20220127
  4. TPN [Suspect]
     Active Substance: AMINO ACIDS\DEXTROSE\ELECTROLYTES NOS\SOYBEAN OIL
     Indication: Parenteral nutrition
     Dosage: ELECTROLYTE FREE
     Route: 065
     Dates: start: 20220127

REACTIONS (4)
  - Gastrointestinal haemorrhage [Fatal]
  - Blood chloride abnormal [Unknown]
  - Oedema [Unknown]
  - Hyperglycaemia [Unknown]

NARRATIVE: CASE EVENT DATE: 20220101
